FAERS Safety Report 6936108-6 (Version None)
Quarter: 2010Q3

REPORT INFORMATION
  Report Type: 
  Country: None (occurrence: None)
  Receive Date: 20100819
  Receipt Date: 20100819
  Transmission Date: 20110219
  Serious: Yes (Hospitalization)
  Sender: FDA-Public Use
  Company Number: None

PATIENT
  Sex: Female
  Weight: 75.81 kg

DRUGS (2)
  1. SPRYCEL [Suspect]
     Indication: NEOPLASM MALIGNANT
     Dosage: 50 MG BID PO
     Route: 048
     Dates: start: 20100106, end: 20100109
  2. GEMZAR [Suspect]
     Dosage: 1810MG D 1, 8, 15 IV
     Route: 042

REACTIONS (4)
  - ABDOMINAL PAIN UPPER [None]
  - LIVER FUNCTION TEST ABNORMAL [None]
  - NAUSEA [None]
  - VOMITING [None]
